FAERS Safety Report 13884307 (Version 1)
Quarter: 2017Q3

REPORT INFORMATION
  Report Type: Spontaneous
  Country: US (occurrence: US)
  Receive Date: 20170821
  Receipt Date: 20170821
  Transmission Date: 20171127
  Serious: No
  Sender: FDA-Public Use
  Company Number: US-TEVA-731452USA

PATIENT
  Age: 52 Year
  Sex: Male

DRUGS (1)
  1. SPIRONOLACTONE. [Suspect]
     Active Substance: SPIRONOLACTONE
     Indication: MYOCARDIAL INFARCTION
     Dosage: 25 MILLIGRAM DAILY;
     Route: 065

REACTIONS (2)
  - Breast swelling [Recovered/Resolved]
  - Breast tenderness [Unknown]

NARRATIVE: CASE EVENT DATE: 20150723
